FAERS Safety Report 14654972 (Version 2)
Quarter: 2018Q1

REPORT INFORMATION
  Report Type: Spontaneous
  Country: US (occurrence: US)
  Receive Date: 20180319
  Receipt Date: 20180330
  Transmission Date: 20180509
  Serious: No
  Sender: FDA-Public Use
  Company Number: US-GLAXOSMITHKLINE-US2018039633

PATIENT
  Age: 61 Year
  Sex: Male

DRUGS (1)
  1. NICORETTE [Suspect]
     Active Substance: NICOTINE
     Indication: SMOKING CESSATION THERAPY
     Dosage: 4 MG, UNK
     Dates: start: 20180222

REACTIONS (3)
  - Product quality issue [Unknown]
  - Tooth erosion [Unknown]
  - Dental caries [Unknown]

NARRATIVE: CASE EVENT DATE: 20180310
